FAERS Safety Report 7767162-X (Version None)
Quarter: 2011Q3

REPORT INFORMATION
  Report Type: 
  Country: None (occurrence: None)
  Receive Date: 20110922
  Receipt Date: 20110405
  Transmission Date: 20111222
  Serious: No
  Sender: FDA-Public Use
  Company Number: US-ASTRAZENECA-2011SE19356

PATIENT
  Age: 56 Year
  Sex: Female
  Weight: 90.7 kg

DRUGS (14)
  1. ATENOLOL [Concomitant]
     Indication: MIGRAINE
     Route: 048
  2. OXYCODONE HCL [Concomitant]
     Indication: PAIN
     Route: 048
  3. VITAMIN D [Concomitant]
     Route: 048
  4. COZAAR [Concomitant]
     Indication: BLOOD PRESSURE ABNORMAL
     Route: 048
     Dates: start: 20110301
  5. PRISTIQ [Concomitant]
     Indication: DEPRESSION
     Route: 048
  6. ASPIRIN [Concomitant]
     Route: 048
  7. SEROQUEL XR [Suspect]
     Indication: DEPRESSION
     Route: 048
     Dates: start: 20110101
  8. NEXIUM [Suspect]
     Route: 048
  9. SENNA PLUS [Concomitant]
     Indication: ABDOMINAL DISCOMFORT
     Route: 048
  10. ZOCOR [Concomitant]
     Indication: BLOOD CHOLESTEROL ABNORMAL
     Route: 048
  11. WELLBUTRIN [Concomitant]
     Route: 048
  12. KADIAN ER [Concomitant]
     Indication: PAIN
     Route: 048
  13. PHENERGAN HCL [Concomitant]
     Indication: NAUSEA
     Route: 048
  14. SONATA [Concomitant]
     Indication: SLEEP DISORDER
     Route: 048

REACTIONS (5)
  - FATIGUE [None]
  - HYPERTENSION [None]
  - WEIGHT INCREASED [None]
  - DRUG DOSE OMISSION [None]
  - BLOOD GLUCOSE INCREASED [None]
